FAERS Safety Report 16810815 (Version 1)
Quarter: 2019Q4

REPORT INFORMATION
  Report Type: Spontaneous
  Country: US (occurrence: US)
  Receive Date: 20190916
  Receipt Date: 20190916
  Transmission Date: 20200122
  Serious: Yes (Other)
  Sender: FDA-Public Use
  Company Number: None

PATIENT
  Sex: Female

DRUGS (8)
  1. KETOCONAZOLE. [Concomitant]
     Active Substance: KETOCONAZOLE
  2. CALCIUM CARB [Concomitant]
     Active Substance: CALCIUM CARBONATE
  3. LOVAZA [Concomitant]
     Active Substance: OMEGA-3-ACID ETHYL ESTERS
  4. GLYBURIDE. [Concomitant]
     Active Substance: GLYBURIDE
  5. FASLODEX [Concomitant]
     Active Substance: FULVESTRANT
  6. OMEGA [Concomitant]
     Active Substance: CONVALLARIA MAJALIS\CRATAEGUS LAEVIGATA LEAF\PROXYPHYLLINE
  7. TYLENOL [Concomitant]
     Active Substance: ACETAMINOPHEN
  8. IBRANCE [Suspect]
     Active Substance: PALBOCICLIB
     Indication: MALIGNANT NIPPLE NEOPLASM FEMALE
     Route: 048
     Dates: start: 20180602

REACTIONS (3)
  - Abdominal neoplasm [None]
  - Haemorrhage [None]
  - Discharge [None]
